FAERS Safety Report 24036149 (Version 1)
Quarter: 2024Q3

REPORT INFORMATION
  Report Type: Spontaneous
  Country: US (occurrence: US)
  Receive Date: 20240701
  Receipt Date: 20240701
  Transmission Date: 20241017
  Serious: No
  Sender: SANOFI AVENTIS
  Company Number: US-SA-SAC20240625001149

PATIENT
  Age: 3 Year
  Sex: Male

DRUGS (2)
  1. DUPIXENT [Suspect]
     Active Substance: DUPILUMAB
     Indication: Eczema
     Dosage: 300MG EVERY 4 WEEKS
     Route: 058
     Dates: start: 202312
  2. DUPIXENT [Suspect]
     Active Substance: DUPILUMAB
     Dosage: 300MG EVERY 4 WEEKS
     Route: 058
     Dates: start: 202403

REACTIONS (5)
  - Eczema [Unknown]
  - Ear haemorrhage [Unknown]
  - Rash [Unknown]
  - Product dose omission issue [Unknown]
  - Therapeutic response decreased [Unknown]
